FAERS Safety Report 6524958-X (Version None)
Quarter: 2010Q1

REPORT INFORMATION
  Report Type: 
  Country: None (occurrence: None)
  Receive Date: 20100104
  Receipt Date: 20091223
  Transmission Date: 20100710
  Serious: Yes (Hospitalization)
  Sender: FDA-Public Use
  Company Number: DE-ASTRAZENECA-2009SE33297

PATIENT
  Age: 16758 Day
  Sex: Female
  Weight: 57.8 kg

DRUGS (13)
  1. SEROQUEL XR [Suspect]
     Indication: AFFECTIVE DISORDER
     Dosage: UP TO MAXIMUM OF 800 MG/DAY
     Route: 048
     Dates: start: 20091107, end: 20091209
  2. SEROQUEL XR [Suspect]
     Indication: SCHIZOAFFECTIVE DISORDER
     Dosage: UP TO MAXIMUM OF 800 MG/DAY
     Route: 048
     Dates: start: 20091107, end: 20091209
  3. LEPONEX [Concomitant]
     Indication: SUICIDAL BEHAVIOUR
     Route: 048
  4. LEPONEX [Concomitant]
     Indication: SCHIZOAFFECTIVE DISORDER
     Route: 048
  5. LEPONEX [Concomitant]
     Route: 048
  6. LEPONEX [Concomitant]
     Route: 048
  7. VENLAFAXIN RETARD [Concomitant]
     Indication: DEPRESSION
     Route: 048
     Dates: start: 20091112
  8. VENLAFAXIN RETARD [Concomitant]
     Indication: AFFECTIVE DISORDER
     Route: 048
     Dates: start: 20091112
  9. VENLAFAXIN RETARD [Concomitant]
     Route: 048
  10. VENLAFAXIN RETARD [Concomitant]
     Route: 048
  11. DYSURGAL [Concomitant]
     Route: 048
     Dates: start: 20091116
  12. TAVOR [Concomitant]
     Route: 048
     Dates: start: 20091124
  13. TAVOR [Concomitant]
     Route: 048

REACTIONS (1)
  - LEUKOPENIA [None]
